FAERS Safety Report 16119811 (Version 1)
Quarter: 2019Q1

REPORT INFORMATION
  Report Type: Spontaneous
  Country: US (occurrence: US)
  Receive Date: 20190326
  Receipt Date: 20190326
  Transmission Date: 20190418
  Serious: Yes (Other)
  Sender: FDA-Public Use
  Company Number: US-AMARIN PHARMA, INC.-2019AMR000111

PATIENT
  Age: 53 Year
  Sex: Female
  Weight: 66.28 kg

DRUGS (3)
  1. SYNTHROID [Concomitant]
     Active Substance: LEVOTHYROXINE SODIUM
     Dates: start: 20190318
  2. VASCEPA [Suspect]
     Active Substance: ICOSAPENT ETHYL
     Indication: BLOOD TRIGLYCERIDES INCREASED
     Route: 048
     Dates: start: 201708
  3. SYNTHROID [Concomitant]
     Active Substance: LEVOTHYROXINE SODIUM
     Indication: THYROID DISORDER

REACTIONS (6)
  - Product coating issue [Unknown]
  - Low density lipoprotein increased [Unknown]
  - Product odour abnormal [Unknown]
  - Blood thyroid stimulating hormone increased [Unknown]
  - Chorioretinopathy [Unknown]
  - Product physical issue [Unknown]

NARRATIVE: CASE EVENT DATE: 201808
